FAERS Safety Report 9449394 (Version 1)
Quarter: 2013Q3

REPORT INFORMATION
  Report Type: Spontaneous
  Country: CO (occurrence: CO)
  Receive Date: 20130809
  Receipt Date: 20130809
  Transmission Date: 20140515
  Serious: Yes (Other)
  Sender: FDA-Public Use
  Company Number: CO-AMGEN-COLSP2013055786

PATIENT
  Age: 49 Year
  Sex: Female

DRUGS (4)
  1. ENBREL [Suspect]
     Indication: PSORIASIS
     Dosage: 50 MG, WEEKLY
     Route: 058
     Dates: start: 2009, end: 201307
  2. METHOTREXATE [Concomitant]
     Indication: PSORIASIS
     Dosage: 2.5 MG, 6 TABLETS WEEKLY
     Route: 048
     Dates: start: 2006
  3. EUTIROX [Concomitant]
     Indication: THYROID DISORDER
     Dosage: 75 MCG, 1X/DAY
     Route: 048
     Dates: start: 2006
  4. ACETAMINOPHEN [Concomitant]
     Indication: PAIN
     Dosage: 50 MG, AS NEEDED
     Route: 048

REACTIONS (5)
  - Psoriatic arthropathy [Unknown]
  - Dry skin [Unknown]
  - Drug resistance [Unknown]
  - Thyroid disorder [Unknown]
  - Psoriasis [Unknown]
